FAERS Safety Report 16866157 (Version 1)
Quarter: 2019Q3

REPORT INFORMATION
  Report Type: Spontaneous
  Country: DE (occurrence: DE)
  Receive Date: 20190930
  Receipt Date: 20190930
  Transmission Date: 20191005
  Serious: Yes (Other)
  Sender: FDA-Public Use
  Company Number: DE-AMGEN-DEUSP2019159288

PATIENT
  Age: 33 Year
  Sex: Female

DRUGS (2)
  1. AIMOVIG [Suspect]
     Active Substance: ERENUMAB-AOOE
     Dosage: 140 MILLIGRAM
     Route: 065
     Dates: start: 201907, end: 201908
  2. AIMOVIG [Suspect]
     Active Substance: ERENUMAB-AOOE
     Indication: MIGRAINE
     Dosage: 70 MILLIGRAM
     Route: 058
     Dates: start: 201905, end: 201906

REACTIONS (4)
  - Metrorrhagia [Not Recovered/Not Resolved]
  - Alopecia [Not Recovered/Not Resolved]
  - Irritability [Not Recovered/Not Resolved]
  - Hypersensitivity vasculitis [Not Recovered/Not Resolved]

NARRATIVE: CASE EVENT DATE: 201906
